FAERS Safety Report 21920343 (Version 1)
Quarter: 2023Q1

REPORT INFORMATION
  Report Type: Spontaneous
  Country: US (occurrence: None)
  Receive Date: 20230127
  Receipt Date: 20230127
  Transmission Date: 20230417
  Serious: Yes (Hospitalization)
  Sender: FDA-Public Use
  Company Number: None

PATIENT
  Age: 64 Year
  Sex: Female
  Weight: 50.4 kg

DRUGS (17)
  1. ADAGRASIB [Suspect]
     Active Substance: ADAGRASIB
     Indication: Non-small cell lung cancer
     Dosage: FREQUENCY : TWICE A DAY;?
     Route: 048
     Dates: start: 20230113, end: 20230121
  2. ASPIRIN [Concomitant]
     Active Substance: ASPIRIN
  3. VITAMIN C [Concomitant]
     Active Substance: ASCORBIC ACID
  4. belbuca 300 mg film BID [Concomitant]
  5. Cetirizine 10 mg once daily [Concomitant]
  6. ferrous sulfate 325 mg once daily [Concomitant]
  7. Gabapentin 300 mg QID [Concomitant]
  8. Hyoscyamin 0.375 mg daily [Concomitant]
  9. lorazepam 0.5mg tablet [Concomitant]
  10. centrum silver women multivitamin daily [Concomitant]
  11. omeprazole 20mg once daily [Concomitant]
  12. oxycodone 10 mg tablet three times daily PRN [Concomitant]
  13. Potassium Chloride 20mEq once daily [Concomitant]
  14. spironolactone 25 mg every other day [Concomitant]
     Dates: end: 20230123
  15. venlafaxine xr 75 mg once daily [Concomitant]
  16. prochlorperazine 10 mg every 6 hours PRN [Concomitant]
  17. Ondansetron 8 mg Every 8 hours PRN [Concomitant]

REACTIONS (12)
  - Nausea [None]
  - Hypotension [None]
  - Gait disturbance [None]
  - Diplopia [None]
  - Malaise [None]
  - Unresponsive to stimuli [None]
  - Blood glucose decreased [None]
  - Atrial flutter [None]
  - Mental status changes [None]
  - Liver function test increased [None]
  - Tachycardia [None]
  - Electrocardiogram QT prolonged [None]

NARRATIVE: CASE EVENT DATE: 20230121
